FAERS Safety Report 16157641 (Version 1)
Quarter: 2019Q2

REPORT INFORMATION
  Report Type: Spontaneous
  Country: US (occurrence: US)
  Receive Date: 20190404
  Receipt Date: 20190404
  Transmission Date: 20190711
  Serious: No
  Sender: FDA-Public Use
  Company Number: US-CELGENEUS-USA-20190400312

PATIENT
  Age: 84 Year
  Sex: Male
  Weight: 75.36 kg

DRUGS (1)
  1. POMALYST [Suspect]
     Active Substance: POMALIDOMIDE
     Indication: PLASMA CELL MYELOMA
     Dosage: 4 MILLIGRAM
     Route: 048
     Dates: start: 201805

REACTIONS (3)
  - Fall [Unknown]
  - Dizziness [Unknown]
  - Skin abrasion [Unknown]

NARRATIVE: CASE EVENT DATE: 20190328
